FAERS Safety Report 17022553 (Version 1)
Quarter: 2019Q4

REPORT INFORMATION
  Report Type: Spontaneous
  Country: JP (occurrence: JP)
  Receive Date: 20191112
  Receipt Date: 20191112
  Transmission Date: 20200122
  Serious: Yes (Death)
  Sender: FDA-Public Use
  Company Number: JP-ALLERGAN-1944699US

PATIENT
  Sex: Female

DRUGS (1)
  1. MEMANTINE HCL - BP [Suspect]
     Active Substance: MEMANTINE
     Indication: DEMENTIA

REACTIONS (6)
  - Skin disorder [Unknown]
  - Constipation [Unknown]
  - Malaise [Unknown]
  - Weight decreased [Unknown]
  - Dysphonia [Unknown]
  - Death [Fatal]

NARRATIVE: CASE EVENT DATE: 2016
